FAERS Safety Report 4913035-7 (Version None)
Quarter: 2006Q1

REPORT INFORMATION
  Report Type: 
  Country: None (occurrence: None)
  Receive Date: 20060210
  Receipt Date: 20060202
  Transmission Date: 20060701
  Serious: Yes (Other)
  Sender: FDA-Public Use
  Company Number: 2005167397

PATIENT
  Age: 23 Year
  Sex: Female
  Weight: 79.8 kg

DRUGS (3)
  1. CYTOTEC [Suspect]
     Indication: HAEMORRHAGE
     Dosage: 1600 MCG (400 MCG, 4 IN 1 D),
     Dates: start: 20051207, end: 20051207
  2. AMPICILLIN [Concomitant]
  3. GENTAMICIN [Concomitant]

REACTIONS (11)
  - ANISOCYTOSIS [None]
  - BLOOD PRESSURE SYSTOLIC DECREASED [None]
  - BODY TEMPERATURE DECREASED [None]
  - DYSPNOEA [None]
  - NEUTROPHIL TOXIC GRANULATION PRESENT [None]
  - OXYGEN SATURATION DECREASED [None]
  - PULMONARY EMBOLISM [None]
  - RED BLOOD CELL COUNT DECREASED [None]
  - SEPSIS [None]
  - TACHYCARDIA [None]
  - TREMOR [None]
